FAERS Safety Report 9807392 (Version 1)
Quarter: 2014Q1

REPORT INFORMATION
  Report Type: Report from Study
  Country: US (occurrence: US)
  Receive Date: 20140110
  Receipt Date: 20140110
  Transmission Date: 20141002
  Serious: Yes (Other)
  Sender: FDA-Public Use
  Company Number: US-ROCHE-1330362

PATIENT
  Sex: Male

DRUGS (6)
  1. AVASTIN [Suspect]
     Indication: RETINAL VEIN OCCLUSION
     Route: 050
     Dates: start: 20121207
  2. GLYBURIDE [Concomitant]
  3. ANTIVERT [Concomitant]
  4. LIPITOR [Concomitant]
     Dosage: TAKE ONE
     Route: 048
  5. ZESTRIL [Concomitant]
  6. POLYTRIM [Concomitant]
     Dosage: 10,000 UNITS PER ML/0.1 PERCENT
     Route: 047

REACTIONS (4)
  - Retinal oedema [Unknown]
  - Retinal haemorrhage [Unknown]
  - Retinopathy [Unknown]
  - Ophthalmological examination abnormal [Unknown]
